FAERS Safety Report 21355200 (Version 3)
Quarter: 2022Q4

REPORT INFORMATION
  Report Type: Report from Study
  Country: DE (occurrence: DE)
  Receive Date: 20220920
  Receipt Date: 20221013
  Transmission Date: 20230113
  Serious: Yes (Other)
  Sender: FDA-Public Use
  Company Number: DE-BRISTOL-MYERS SQUIBB COMPANY-2022-107564

PATIENT
  Age: 62 Year
  Sex: Female
  Weight: 89 kg

DRUGS (10)
  1. LENALIDOMIDE [Suspect]
     Active Substance: LENALIDOMIDE
     Indication: Plasma cell myeloma
     Route: 065
     Dates: start: 20191223
  2. LENALIDOMIDE [Suspect]
     Active Substance: LENALIDOMIDE
     Route: 048
     Dates: end: 20220320
  3. DEXAMETHASONE [Suspect]
     Active Substance: DEXAMETHASONE
     Indication: Plasma cell myeloma
     Route: 065
     Dates: start: 20191223
  4. DEXAMETHASONE [Suspect]
     Active Substance: DEXAMETHASONE
     Route: 042
     Dates: end: 20201116
  5. ISATUXIMAB [Suspect]
     Active Substance: ISATUXIMAB
     Indication: Plasma cell myeloma
     Route: 065
     Dates: start: 20191223
  6. ISATUXIMAB [Suspect]
     Active Substance: ISATUXIMAB
     Route: 042
     Dates: end: 20220221
  7. BORTEZOMIB [Suspect]
     Active Substance: BORTEZOMIB
     Indication: Plasma cell myeloma
     Route: 065
     Dates: start: 20191223
  8. BORTEZOMIB [Suspect]
     Active Substance: BORTEZOMIB
     Route: 058
     Dates: end: 20220424
  9. FILGRASTIM [Concomitant]
     Active Substance: FILGRASTIM
     Indication: Plasma cell myeloma
     Dates: start: 20200508
  10. MELPHALAN [Concomitant]
     Active Substance: MELPHALAN
     Indication: Plasma cell myeloma
     Dosage: HIGH DOSE
     Dates: start: 20200626

REACTIONS (1)
  - Acute leukaemia [Recovered/Resolved with Sequelae]

NARRATIVE: CASE EVENT DATE: 20220913
